FAERS Safety Report 6156570-9 (Version None)
Quarter: 2009Q2

REPORT INFORMATION
  Report Type: 
  Country: None (occurrence: None)
  Receive Date: 20090413
  Receipt Date: 20090203
  Transmission Date: 20091009
  Serious: Yes (Other)
  Sender: FDA-Public Use
  Company Number: OPER20090020

PATIENT
  Age: 36 Year
  Sex: Male
  Weight: 99.7913 kg

DRUGS (1)
  1. OPANA ER [Suspect]
     Dosage: 2-3 TIMES PER DAY, INTRA-NASAL
     Route: 045

REACTIONS (4)
  - DRUG ABUSE [None]
  - INCORRECT ROUTE OF DRUG ADMINISTRATION [None]
  - INTENTIONAL DRUG MISUSE [None]
  - WRONG TECHNIQUE IN DRUG USAGE PROCESS [None]
